FAERS Safety Report 21080404 (Version 4)
Quarter: 2022Q3

REPORT INFORMATION
  Report Type: Spontaneous
  Country: US (occurrence: US)
  Receive Date: 20220714
  Receipt Date: 20220831
  Transmission Date: 20221027
  Serious: No
  Sender: FDA-Public Use
  Company Number: US-PFIZER INC-202200911786

PATIENT
  Age: 14 Year
  Sex: Female
  Weight: 59.87 kg

DRUGS (2)
  1. GENOTROPIN [Suspect]
     Active Substance: SOMATROPIN
     Indication: Growth hormone deficiency
     Dosage: GETS 2 AND THEN 2.2 EVERY OTHER NIGHT AND ALTERNATES DOSES
  2. GENOTROPIN [Suspect]
     Active Substance: SOMATROPIN
     Dosage: GETS 2 AND THEN 2.2 EVERY OTHER NIGHT AND ALTERNATES DOSES

REACTIONS (4)
  - Drug dose omission by device [Unknown]
  - Device information output issue [Unknown]
  - Poor quality device used [Unknown]
  - Device breakage [Unknown]

NARRATIVE: CASE EVENT DATE: 20220101
